FAERS Safety Report 7905132-9 (Version None)
Quarter: 2011Q4

REPORT INFORMATION
  Report Type: 
  Country: None (occurrence: None)
  Receive Date: 20111109
  Receipt Date: 20111102
  Transmission Date: 20120403
  Serious: Yes (Other)
  Sender: FDA-Public Use
  Company Number: CHPA2011US015579

PATIENT
  Age: 91 Year
  Sex: Female

DRUGS (1)
  1. LAMISIL [Suspect]
     Indication: FUNGAL SKIN INFECTION
     Dosage: A LOT, UNK
     Route: 061

REACTIONS (3)
  - OFF LABEL USE [None]
  - FLUID RETENTION [None]
  - FAT TISSUE INCREASED [None]
